FAERS Safety Report 4667643-1 (Version None)
Quarter: 2005Q2

REPORT INFORMATION
  Report Type: 
  Country: None (occurrence: None)
  Receive Date: 20050520
  Receipt Date: 20040810
  Transmission Date: 20051028
  Serious: Yes (Other)
  Sender: FDA-Public Use
  Company Number: PHNU2004DE02843

PATIENT
  Sex: Female

DRUGS (2)
  1. AREDIA [Suspect]
     Indication: BREAST CANCER METASTATIC
     Dosage: 90 MG, QMO
     Dates: start: 20020401, end: 20030601
  2. ZOMETA [Suspect]
     Indication: BREAST CANCER METASTATIC
     Dosage: 4 MG, QMO
     Dates: start: 20030701, end: 20040501

REACTIONS (4)
  - BIOPSY BONE [None]
  - BONE DISORDER [None]
  - ORAL SURGERY [None]
  - OSTEONECROSIS [None]
